FAERS Safety Report 9197580 (Version 1)
Quarter: 2013Q1

REPORT INFORMATION
  Report Type: Spontaneous
  Country: IT (occurrence: IT)
  Receive Date: 20130328
  Receipt Date: 20130328
  Transmission Date: 20140127
  Serious: Yes (Hospitalization)
  Sender: FDA-Public Use
  Company Number: IT-TEVA-393761ISR

PATIENT
  Age: 46 Year
  Sex: Female

DRUGS (1)
  1. LEVOFLOXACIN [Suspect]
     Indication: INFLUENZA
     Dosage: 1000 MILLIGRAM DAILY;
     Route: 048
     Dates: start: 20130307, end: 20130308

REACTIONS (3)
  - Back pain [Recovering/Resolving]
  - Myalgia [Recovering/Resolving]
  - Muscle spasms [Recovering/Resolving]
